FAERS Safety Report 18290387 (Version 2)
Quarter: 2020Q4

REPORT INFORMATION
  Report Type: Spontaneous
  Country: RU (occurrence: RU)
  Receive Date: 20200921
  Receipt Date: 20201008
  Transmission Date: 20210113
  Serious: Yes (Life-Threatening)
  Sender: FDA-Public Use
  Company Number: RU-ELI_LILLY_AND_COMPANY-RU202009007449

PATIENT
  Age: 78 Year
  Sex: Female

DRUGS (4)
  1. VERZENIO [Suspect]
     Active Substance: ABEMACICLIB
     Indication: METASTASES TO LUNG
  2. FULVESTRANT. [Concomitant]
     Active Substance: FULVESTRANT
     Indication: METASTASES TO LUNG
  3. FULVESTRANT. [Concomitant]
     Active Substance: FULVESTRANT
     Indication: BREAST CANCER METASTATIC
     Dosage: 500 MG, CYCLICAL(1,15,29 DAY, THEN 1 TIME IN 28 DAYS)
     Route: 065
  4. VERZENIO [Suspect]
     Active Substance: ABEMACICLIB
     Indication: BREAST CANCER METASTATIC
     Dosage: 150 MG, BID
     Route: 065
     Dates: start: 20200713, end: 20200827

REACTIONS (2)
  - Blood creatinine increased [Recovering/Resolving]
  - Thrombocytopenia [Recovering/Resolving]

NARRATIVE: CASE EVENT DATE: 20200826
